FAERS Safety Report 7391190 (Version 6)
Quarter: 2012Q4

REPORT INFORMATION
  Report Type: 
  Country: US (occurrence: US)
  Receive Date: 20100518
  Receipt Date: 20120907
  Transmission Date: 20130627
  Serious: Yes (Hospitalization)
  Sender: FDA-Public Use
  Company Number: US-BAYER-201022355NA

PATIENT
  Age: 34 Year
  Sex: Female
  Weight: 84 kg

DRUGS (12)
  1. YAZ [Suspect]
     Indication: ORAL CONTRACEPTION
     Dosage: UNK UNK, QD
     Route: 048
     Dates: start: 200610, end: 20090915
  2. YAZ [Suspect]
     Indication: PREMENSTRUAL SYNDROME
  3. YASMIN [Suspect]
     Indication: PREMENSTRUAL SYNDROME
     Dosage: UNK UNK, QD
     Route: 048
     Dates: start: 2003, end: 20060715
  4. METHYLPREDNISOLONE [Concomitant]
     Dosage: DAILY
  5. ZONEGRAN [Concomitant]
     Dosage: DAILY
  6. NEURONTIN [Concomitant]
     Dosage: DAILY
  7. KLONOPIN [Concomitant]
     Dosage: DAILY
  8. ZOMIG-ZMT [Concomitant]
     Dosage: OCCASION
  9. IBUPROFEN [Concomitant]
  10. LORCET [Concomitant]
     Dosage: UNK, PRN
     Dates: start: 20090924
  11. PHENERGAN [Concomitant]
     Dosage: UNK, PRN
     Dates: start: 20090924
  12. MORPHINE SULFATE [Concomitant]

REACTIONS (6)
  - Pulmonary embolism [Unknown]
  - Pain in extremity [Unknown]
  - Groin pain [Unknown]
  - Chest pain [Unknown]
  - Dyspnoea [Unknown]
  - Chest discomfort [Unknown]
